FAERS Safety Report 6919392-4 (Version None)
Quarter: 2010Q3

REPORT INFORMATION
  Report Type: 
  Country: None (occurrence: None)
  Receive Date: 20100811
  Receipt Date: 20100803
  Transmission Date: 20110219
  Serious: Yes (Hospitalization)
  Sender: FDA-Public Use
  Company Number: A0874934A

PATIENT
  Age: 48 Year
  Sex: Male

DRUGS (2)
  1. AVANDIA [Suspect]
     Dosage: 4MG PER DAY
     Route: 048
     Dates: start: 19990101, end: 20080801
  2. AVANDAMET [Suspect]
     Route: 048
     Dates: start: 20040701, end: 20091201

REACTIONS (4)
  - ACUTE MYOCARDIAL INFARCTION [None]
  - ERECTILE DYSFUNCTION [None]
  - HYPERTENSION [None]
  - WEIGHT INCREASED [None]
